FAERS Safety Report 13270430 (Version 1)
Quarter: 2017Q1

REPORT INFORMATION
  Report Type: Spontaneous
  Country: CA (occurrence: CA)
  Receive Date: 20170224
  Receipt Date: 20170224
  Transmission Date: 20170428
  Serious: Yes (Hospitalization)
  Sender: FDA-Public Use
  Company Number: CA-ACTELION-A-NJ2016-140351

PATIENT
  Age: 50 Year
  Sex: Female

DRUGS (15)
  1. GRAVOL [Concomitant]
     Active Substance: DIMENHYDRINATE
  2. LASIX [Concomitant]
     Active Substance: FUROSEMIDE
  3. PANTOLOC [Concomitant]
     Active Substance: PANTOPRAZOLE SODIUM
  4. OXYCODONE [Concomitant]
     Active Substance: OXYCODONE
  5. ZOPLICONE [Concomitant]
     Active Substance: ZOPICLONE
  6. OPSUMIT [Suspect]
     Active Substance: MACITENTAN
     Indication: PULMONARY ARTERIAL HYPERTENSION
     Route: 048
  7. SPIRONOLACTONE. [Concomitant]
     Active Substance: SPIRONOLACTONE
  8. TRAZODONE [Concomitant]
     Active Substance: TRAZODONE HYDROCHLORIDE
  9. CARIPUL [Suspect]
     Active Substance: EPOPROSTENOL
     Indication: PULMONARY ARTERIAL HYPERTENSION
     Dosage: 72 UNK, UNK
     Route: 042
     Dates: start: 20140909
  10. HYDROXYZINE [Concomitant]
     Active Substance: HYDROXYZINE HYDROCHLORIDE
  11. VITAMIN D [Concomitant]
     Active Substance: CHOLECALCIFEROL
  12. REVATIO [Concomitant]
     Active Substance: SILDENAFIL CITRATE
  13. OXYNEO [Concomitant]
     Active Substance: OXYCODONE
  14. UROKINASE [Concomitant]
     Active Substance: UROKINASE
  15. COUMADIN [Concomitant]
     Active Substance: WARFARIN SODIUM

REACTIONS (5)
  - Left ventricular failure [Unknown]
  - Oedema peripheral [Unknown]
  - Right ventricular failure [Unknown]
  - Oxygen saturation decreased [Unknown]
  - Weight increased [Unknown]

NARRATIVE: CASE EVENT DATE: 20160729
